FAERS Safety Report 6416742-2 (Version None)
Quarter: 2009Q4

REPORT INFORMATION
  Report Type: 
  Country: None (occurrence: None)
  Receive Date: 20091027
  Receipt Date: 20091013
  Transmission Date: 20100525
  Serious: Yes (Other)
  Sender: FDA-Public Use
  Company Number: CA-GENENTECH-289023

PATIENT
  Sex: Female

DRUGS (19)
  1. XOLAIR [Suspect]
     Indication: ASTHMA
     Dosage: 150 MG, 1/MONTH
     Route: 058
     Dates: start: 20090228, end: 20090418
  2. ATROVENT [Concomitant]
     Indication: DRUG USE FOR UNKNOWN INDICATION
  3. COMBIVENT [Concomitant]
     Indication: DRUG USE FOR UNKNOWN INDICATION
  4. VENTOLIN [Concomitant]
     Indication: DRUG USE FOR UNKNOWN INDICATION
  5. ALVESCO [Concomitant]
     Indication: DRUG USE FOR UNKNOWN INDICATION
  6. CORTISONE [Concomitant]
     Indication: DRUG USE FOR UNKNOWN INDICATION
  7. SEREVENT [Concomitant]
     Indication: DRUG USE FOR UNKNOWN INDICATION
  8. SPIRIVA [Concomitant]
     Indication: DRUG USE FOR UNKNOWN INDICATION
  9. FLOVENT [Concomitant]
     Indication: DRUG USE FOR UNKNOWN INDICATION
  10. PREVACID [Concomitant]
     Indication: DRUG USE FOR UNKNOWN INDICATION
  11. ADVAIR DISKUS 100/50 [Concomitant]
     Indication: DRUG USE FOR UNKNOWN INDICATION
  12. AMRIX [Concomitant]
     Indication: DRUG USE FOR UNKNOWN INDICATION
  13. SINGULAIR [Concomitant]
     Indication: DRUG USE FOR UNKNOWN INDICATION
     Dosage: UNK
     Dates: start: 20090627
  14. NASONEX [Concomitant]
     Indication: DRUG USE FOR UNKNOWN INDICATION
  15. BICITRA [Concomitant]
     Indication: DRUG USE FOR UNKNOWN INDICATION
  16. DECADRON [Concomitant]
     Indication: DRUG USE FOR UNKNOWN INDICATION
  17. ZOFRAN [Concomitant]
     Indication: DRUG USE FOR UNKNOWN INDICATION
  18. KETOROLAC TROMETHAMINE [Concomitant]
     Indication: DRUG USE FOR UNKNOWN INDICATION
  19. DURATOCIN [Concomitant]
     Indication: DRUG USE FOR UNKNOWN INDICATION

REACTIONS (5)
  - ANAPHYLACTIC SHOCK [None]
  - CEREBROVASCULAR ACCIDENT [None]
  - DRUG EXPOSURE DURING PREGNANCY [None]
  - FOETAL GROWTH RETARDATION [None]
  - THROMBOSIS [None]
